FAERS Safety Report 24137574 (Version 1)
Quarter: 2024Q3

REPORT INFORMATION
  Report Type: Spontaneous
  Country: US (occurrence: US)
  Receive Date: 20240725
  Receipt Date: 20240725
  Transmission Date: 20241017
  Serious: No
  Sender: SANDOZ
  Company Number: US-SANDOZ-SDZ2024US067671

PATIENT
  Sex: Male

DRUGS (2)
  1. AYVAKIT [Suspect]
     Active Substance: AVAPRITINIB
     Indication: Systemic mastocytosis
     Dosage: 25 MG, QD
     Route: 065
     Dates: start: 20240522
  2. ZOFRAN [Suspect]
     Active Substance: ONDANSETRON HYDROCHLORIDE
     Indication: Product used for unknown indication
     Dosage: UNK
     Route: 065

REACTIONS (5)
  - White blood cell count decreased [Unknown]
  - Blood lactate dehydrogenase decreased [Unknown]
  - Blood alkaline phosphatase abnormal [Unknown]
  - Tryptase [Unknown]
  - Constipation [Unknown]
